FAERS Safety Report 5417920-1 (Version None)
Quarter: 2007Q3

REPORT INFORMATION
  Report Type: 
  Country: None (occurrence: None)
  Receive Date: 20070815
  Receipt Date: 20070803
  Transmission Date: 20080115
  Serious: No
  Sender: FDA-Public Use
  Company Number: TPA2007A01644

PATIENT

DRUGS (1)
  1. ACTOPLUS MET [Suspect]
     Dosage: 15/850 MG , PER ORAL
     Route: 048

REACTIONS (2)
  - INTERCEPTED MEDICATION ERROR [None]
  - PHARMACEUTICAL PRODUCT COMPLAINT [None]
